FAERS Safety Report 6285572-7 (Version None)
Quarter: 2009Q3

REPORT INFORMATION
  Report Type: 
  Country: None (occurrence: None)
  Receive Date: 20090727
  Receipt Date: 20090721
  Transmission Date: 20100115
  Serious: Yes (Life-Threatening)
  Sender: FDA-Public Use
  Company Number: FR-CELGENEUS-056-21880-09071561

PATIENT
  Sex: Female

DRUGS (3)
  1. REVLIMID [Suspect]
     Route: 048
     Dates: start: 20090630, end: 20090717
  2. CERUBIDINE [Suspect]
     Route: 051
     Dates: start: 20090630, end: 20090702
  3. CYTARABINE [Suspect]
     Route: 051
     Dates: start: 20090630, end: 20090706

REACTIONS (2)
  - DIARRHOEA [None]
  - HYPERBILIRUBINAEMIA [None]
